FAERS Safety Report 23990795 (Version 1)
Quarter: 2024Q2

REPORT INFORMATION
  Report Type: Spontaneous
  Country: US (occurrence: US)
  Receive Date: 20240619
  Receipt Date: 20240619
  Transmission Date: 20240715
  Serious: No
  Sender: FDA-Public Use
  Company Number: US-SANDOZ-SDZ2024US058561

PATIENT

DRUGS (3)
  1. CYCLOSPORINE [Suspect]
     Active Substance: CYCLOSPORINE
     Indication: Immunosuppression
     Dosage: OTHER DOSAGE [E.G. 24/26 MG, 1.6X10^8 CAR-POSITIVE VIABLE T CELLS OR OTHER]
     Route: 065
  2. METHOTREXATE [Suspect]
     Active Substance: METHOTREXATE
     Indication: Immunosuppression
     Dosage: OTHER DOSAGE [E.G. 24/26 MG, 1.6X10^8 CAR-POSITIVE VIABLE T CELLS OR OTHER]
     Route: 065
  3. DUPIXENT [Concomitant]
     Active Substance: DUPILUMAB
     Indication: Immunosuppression
     Dosage: UNK, EVERY COUPLE OF WEEKS Q2W
     Route: 065

REACTIONS (1)
  - Drug ineffective [Unknown]
